APPROVED DRUG PRODUCT: POTASSIUM CHLORIDE 0.15% IN DEXTROSE 5% IN PLASTIC CONTAINER
Active Ingredient: DEXTROSE; POTASSIUM CHLORIDE
Strength: 5GM/100ML;150MG/100ML
Dosage Form/Route: INJECTABLE;INJECTION
Application: N018744 | Product #002
Applicant: B BRAUN MEDICAL INC
Approved: Nov 9, 1982 | RLD: No | RS: No | Type: DISCN